FAERS Safety Report 6221888-8 (Version None)
Quarter: 2009Q2

REPORT INFORMATION
  Report Type: 
  Country: None (occurrence: None)
  Receive Date: 20090608
  Receipt Date: 20090608
  Transmission Date: 20091009
  Serious: Yes (Other)
  Sender: FDA-Public Use
  Company Number: None

PATIENT
  Age: 54 Year
  Sex: Male
  Weight: 78.0187 kg

DRUGS (1)
  1. ZYRTEC [Suspect]
     Indication: MULTIPLE ALLERGIES
     Dosage: 10MG ONE TIME PO
     Route: 048
     Dates: start: 20090603, end: 20090604

REACTIONS (3)
  - FEELING ABNORMAL [None]
  - HYPERSOMNIA [None]
  - IMPAIRED WORK ABILITY [None]
